FAERS Safety Report 9513244 (Version 1)
Quarter: 2013Q3

REPORT INFORMATION
  Report Type: Spontaneous
  Country: US (occurrence: US)
  Receive Date: 20130910
  Receipt Date: 20130910
  Transmission Date: 20140515
  Serious: Yes (Other)
  Sender: FDA-Public Use
  Company Number: CHPA2013US013923

PATIENT
  Age: 76 Year
  Sex: Female

DRUGS (2)
  1. ASCRIPTIN BUFFERED CAPS UNKNOWN FORMULA [Suspect]
     Indication: ARTHRITIS
     Route: 048
  2. ASCRIPTIN BUFFERED CAPS UNKNOWN FORMULA [Suspect]
     Indication: RHEUMATOID ARTHRITIS

REACTIONS (4)
  - Ulcer [Recovered/Resolved]
  - Diabetes mellitus [Not Recovered/Not Resolved]
  - Therapeutic response unexpected [Unknown]
  - Off label use [Unknown]
